FAERS Safety Report 9563696 (Version 1)
Quarter: 2013Q3

REPORT INFORMATION
  Report Type: Spontaneous
  Country: FR (occurrence: None)
  Receive Date: 20130916
  Receipt Date: 20130916
  Transmission Date: 20140515
  Serious: Yes (Other)
  Sender: FDA-Public Use
  Company Number: JPI-P-000847

PATIENT
  Age: 33 Year
  Sex: Male

DRUGS (4)
  1. XYREM (500 MILLIGRAM/MILLILITERS, SOLUTION) (SODIUM OXYBATE) [Suspect]
     Indication: CATAPLEXY
     Route: 048
     Dates: start: 20060524, end: 20061116
  2. FENOFIBRATE [Concomitant]
  3. METHYLPENIDATE HYDROCHLORIDE [Concomitant]
  4. FLUOXETINE [Concomitant]

REACTIONS (15)
  - Enuresis [None]
  - Nightmare [None]
  - Throat irritation [None]
  - Gastrointestinal disorder [None]
  - Abdominal pain upper [None]
  - Sleep disorder [None]
  - Depression [None]
  - Suicide attempt [None]
  - Suicidal ideation [None]
  - Overdose [None]
  - Dry skin [None]
  - Drug intolerance [None]
  - Abdominal pain [None]
  - Gastrooesophageal reflux disease [None]
  - Libido disorder [None]
